FAERS Safety Report 8758735 (Version 1)
Quarter: 2012Q4

REPORT INFORMATION
  Report Type: Spontaneous
  Country: US (occurrence: None)
  Receive Date: 20120828
  Receipt Date: 20120828
  Transmission Date: 20130627
  Serious: Yes (Hospitalization)
  Sender: FDA-Public Use
  Company Number: None

PATIENT
  Age: 78 Year
  Sex: Male
  Weight: 79.5 kg

DRUGS (2)
  1. RIFAMPIN [Suspect]
     Indication: OSTEOMYELITIS
     Route: 048
     Dates: start: 20120807, end: 20120815
  2. RIFABUTIN [Suspect]
     Indication: OSTEOMYELITIS
     Route: 048
     Dates: start: 20120315, end: 20120322

REACTIONS (3)
  - Renal failure acute [None]
  - Renal tubular necrosis [None]
  - Tubulointerstitial nephritis [None]
